FAERS Safety Report 4330033-5 (Version None)
Quarter: 2004Q1

REPORT INFORMATION
  Report Type: 
  Country: None (occurrence: None)
  Receive Date: 20040329
  Receipt Date: 20040318
  Transmission Date: 20041129
  Serious: No
  Sender: FDA-Public Use
  Company Number: 2004GB00451

PATIENT
  Age: 35 Year
  Sex: Male

DRUGS (5)
  1. MERONEM [Suspect]
     Indication: MENINGITIS PNEUMOCOCCAL
     Dosage: 1 G TID IV
     Route: 042
     Dates: start: 20040131, end: 20040220
  2. FERROUS FUMARATE [Concomitant]
  3. PHENYTOIN [Concomitant]
  4. LAXATIVES [Concomitant]
  5. PAIN KILLERS [Concomitant]

REACTIONS (3)
  - CHEST DISCOMFORT [None]
  - PRURITUS [None]
  - RASH [None]
